FAERS Safety Report 5682825-8 (Version None)
Quarter: 2008Q1

REPORT INFORMATION
  Report Type: 
  Country: None (occurrence: None)
  Receive Date: 20080327
  Receipt Date: 20080321
  Transmission Date: 20080703
  Serious: Yes (Other)
  Sender: FDA-Public Use
  Company Number: A0716783A

PATIENT
  Age: 79 Year
  Sex: Male

DRUGS (8)
  1. ADVAIR DISKUS 100/50 [Suspect]
     Indication: ASTHMA
     Dosage: 1PUFF TWICE PER DAY
     Route: 055
     Dates: start: 20030301
  2. ALLOPURINOL [Concomitant]
  3. ENALAPRIL MALEATE [Concomitant]
  4. ASPIRIN [Concomitant]
  5. LOVASTATIN [Concomitant]
  6. NIFEDIPINE [Concomitant]
  7. ALBUTEROL [Concomitant]
  8. UROCIT-K [Concomitant]

REACTIONS (2)
  - CATARACT [None]
  - VISUAL DISTURBANCE [None]
